FAERS Safety Report 6248763-7 (Version None)
Quarter: 2009Q2

REPORT INFORMATION
  Report Type: 
  Country: None (occurrence: None)
  Receive Date: 20090625
  Receipt Date: 20090611
  Transmission Date: 20091009
  Serious: Yes (Hospitalization)
  Sender: FDA-Public Use
  Company Number: 2008-182154-NL

PATIENT
  Age: 46 Year
  Sex: Female
  Weight: 63.5 kg

DRUGS (6)
  1. NUVARING [Suspect]
     Dates: start: 20040101, end: 20070325
  2. DIETARY SUPPLEMENTS (VITAMIN B AND C) [Concomitant]
  3. ADVIL [Concomitant]
  4. LAMISIL /00992601/ [Concomitant]
  5. DHEA [Concomitant]
  6. TESTOSTERONE [Concomitant]

REACTIONS (8)
  - CONVULSION [None]
  - HAEMORRHAGIC CEREBRAL INFARCTION [None]
  - HEADACHE [None]
  - LETHARGY [None]
  - NAUSEA [None]
  - SUBARACHNOID HAEMORRHAGE [None]
  - TRANSVERSE SINUS THROMBOSIS [None]
  - WEIGHT INCREASED [None]
